FAERS Safety Report 7479270-1 (Version None)
Quarter: 2011Q3

REPORT INFORMATION
  Report Type: 
  Country: None (occurrence: None)
  Receive Date: 20110513
  Receipt Date: 20110428
  Transmission Date: 20111222
  Serious: Yes (Other)
  Sender: FDA-Public Use
  Company Number: US-JNJFOC-20110301498

PATIENT
  Sex: Male

DRUGS (2)
  1. VISINE TEARS DRY EYE RELIEF [Suspect]
     Indication: PRODUCT USED FOR UNKNOWN INDICATION
  2. VISINE ADVANCED RELIEF [Suspect]
     Indication: PRODUCT USED FOR UNKNOWN INDICATION

REACTIONS (1)
  - VISUAL IMPAIRMENT [None]
